FAERS Safety Report 5473155-8 (Version None)
Quarter: 2007Q3

REPORT INFORMATION
  Report Type: 
  Country: None (occurrence: None)
  Receive Date: 20070927
  Receipt Date: 20070918
  Transmission Date: 20080115
  Serious: Yes (Death, Congenital Anomaly)
  Sender: FDA-Public Use
  Company Number: 020-20785-07091102

PATIENT

DRUGS (1)
  1. THALIDOMIDE [Suspect]
     Indication: LEPROSY
     Dosage: INTRA-UTERINE
     Route: 015
     Dates: end: 20060101

REACTIONS (3)
  - DRUG EXPOSURE DURING PREGNANCY [None]
  - HEART DISEASE CONGENITAL [None]
  - LIMB REDUCTION DEFECT [None]
